FAERS Safety Report 18320051 (Version 1)
Quarter: 2020Q3

REPORT INFORMATION
  Report Type: Spontaneous
  Country: US (occurrence: US)
  Receive Date: 20200929
  Receipt Date: 20200929
  Transmission Date: 20201103
  Serious: Yes (Other)
  Sender: FDA-Public Use
  Company Number: US-LUPIN PHARMACEUTICALS INC.-2020-06748

PATIENT
  Weight: 1.5 kg

DRUGS (16)
  1. BETAMETHASONE. [Suspect]
     Active Substance: BETAMETHASONE
     Indication: MATERNAL THERAPY TO ENHANCE FOETAL LUNG MATURITY
     Dosage: UNK
     Route: 064
  2. EPOPROSTENOL. [Suspect]
     Active Substance: EPOPROSTENOL
     Indication: RIGHT-TO-LEFT CARDIAC SHUNT
     Dosage: VIA A PERIPHERALLY INSERTED CENTRAL VENOUS CATHETER 1NG/KG/MIN
     Route: 064
  3. TREPROSTINIL. [Suspect]
     Active Substance: TREPROSTINIL
     Indication: RIGHT-TO-LEFT CARDIAC SHUNT
     Dosage: UNK
     Route: 064
  4. TREPROSTINIL. [Suspect]
     Active Substance: TREPROSTINIL
     Dosage: 9 PUFFS
     Route: 064
  5. CHLOROPROCAINE [Suspect]
     Active Substance: CHLOROPROCAINE
     Indication: ANAESTHESIA
     Dosage: 7 MILLILITER
     Route: 064
  6. OXYTOCIN. [Suspect]
     Active Substance: OXYTOCIN
     Indication: UTERINE CONTRACTIONS DURING PREGNANCY
     Dosage: 40 UNITS OVER 30 MINUTES
     Route: 064
  7. HEPARIN [Suspect]
     Active Substance: HEPARIN SODIUM
     Indication: RIGHT-TO-LEFT CARDIAC SHUNT
     Dosage: 7500 INTERNATIONAL UNIT
     Route: 064
  8. EPOPROSTENOL. [Suspect]
     Active Substance: EPOPROSTENOL
     Dosage: 17 NG/KG/MIN OVER A 2?WEEK
     Route: 064
  9. ROPIVACAINE. [Suspect]
     Active Substance: ROPIVACAINE HYDROCHLORIDE
     Indication: ANAESTHESIA
     Dosage: UNK
     Route: 064
  10. SILDENAFIL. [Suspect]
     Active Substance: SILDENAFIL
     Dosage: 3 TIMES PER DAY PRESCRIBED AT THE TIME OF DISCHARGE
     Route: 064
  11. FENTANYL. [Suspect]
     Active Substance: FENTANYL
     Indication: ANAESTHESIA
     Dosage: 2 MG/ML OF FENTANYL RUNNING AT 2 ML/HOUR
     Route: 064
  12. BUPIVACAINE. [Suspect]
     Active Substance: BUPIVACAINE
     Dosage: GRADUAL TITRATION TO 8 ML/H AS ACTIVE LABOR PROGRESSED.
     Route: 064
  13. SILDENAFIL. [Suspect]
     Active Substance: SILDENAFIL
     Indication: RIGHT-TO-LEFT CARDIAC SHUNT
     Dosage: UNK
     Route: 064
  14. ENOXAPARIN [Suspect]
     Active Substance: ENOXAPARIN
     Indication: RIGHT-TO-LEFT CARDIAC SHUNT
     Dosage: 40 MILLIGRAM, QD
     Route: 064
  15. CHLOROPROCAINE [Suspect]
     Active Substance: CHLOROPROCAINE
     Dosage: ADDITIONAL BOLUSES OF 15 ML
     Route: 064
  16. BUPIVACAINE. [Suspect]
     Active Substance: BUPIVACAINE
     Indication: ANAESTHESIA
     Dosage: BOLUSES OF 2 TO 4 ML
     Route: 064

REACTIONS (2)
  - Premature baby [Unknown]
  - Foetal exposure during pregnancy [Unknown]
